FAERS Safety Report 18035020 (Version 2)
Quarter: 2020Q3

REPORT INFORMATION
  Report Type: Report from Study
  Country: None (occurrence: US)
  Receive Date: 20200717
  Receipt Date: 20200817
  Transmission Date: 20201103
  Serious: Yes (Other)
  Sender: FDA-Public Use
  Company Number: US-ABBVIE-20K-163-3482328-00

PATIENT
  Age: 72 Year
  Sex: Female

DRUGS (1)
  1. HUMIRA [Suspect]
     Active Substance: ADALIMUMAB
     Indication: RHEUMATOID ARTHRITIS
     Route: 058
     Dates: start: 20200520

REACTIONS (15)
  - Mobility decreased [Not Recovered/Not Resolved]
  - Peripheral swelling [Unknown]
  - Impaired healing [Unknown]
  - Fatigue [Unknown]
  - Discomfort [Unknown]
  - Swelling [Unknown]
  - Musculoskeletal stiffness [Unknown]
  - Fall [Unknown]
  - Back pain [Not Recovered/Not Resolved]
  - Limb injury [Unknown]
  - Spinal compression fracture [Unknown]
  - Loss of personal independence in daily activities [Not Recovered/Not Resolved]
  - Back injury [Unknown]
  - Anxiety [Unknown]
  - Impaired self-care [Not Recovered/Not Resolved]

NARRATIVE: CASE EVENT DATE: 2020
